FAERS Safety Report 8921826 (Version 1)
Quarter: 2012Q4

REPORT INFORMATION
  Report Type: 
  Country: JP (occurrence: JP)
  Receive Date: 20121121
  Receipt Date: 20121121
  Transmission Date: 20130627
  Serious: Yes (Other)
  Sender: FDA-Public Use
  Company Number: JP-ROCHE-1155105

PATIENT
  Age: 3 Year
  Sex: Male
  Weight: 12.8 kg

DRUGS (4)
  1. PEGASYS [Suspect]
     Indication: CHRONIC HEPATITIS C
     Route: 058
     Dates: start: 20080109, end: 20080205
  2. PEGASYS [Suspect]
     Indication: CHRONIC HEPATITIS C
     Route: 058
     Dates: start: 20080212, end: 20081205
  3. CALONAL [Concomitant]
     Indication: PYREXIA
     Dosage: 120mg to 130mg and a dose
     Route: 048
     Dates: start: 20080109, end: 20080725
  4. ALPINY [Concomitant]
     Indication: PYREXIA
     Dosage: A dose
     Route: 054
     Dates: start: 20081031, end: 20081130

REACTIONS (2)
  - Failure to thrive [Recovering/Resolving]
  - Pyrexia [Unknown]
